FAERS Safety Report 16109962 (Version 1)
Quarter: 2019Q1

REPORT INFORMATION
  Report Type: Spontaneous
  Country: FR (occurrence: FR)
  Receive Date: 20190325
  Receipt Date: 20190325
  Transmission Date: 20190418
  Serious: Yes (Other)
  Sender: FDA-Public Use
  Company Number: FR-ALEXION-A201904371

PATIENT
  Age: 63 Year
  Sex: Male

DRUGS (3)
  1. SOLIRIS [Suspect]
     Active Substance: ECULIZUMAB
     Indication: PAROXYSMAL NOCTURNAL HAEMOGLOBINURIA
     Dosage: 600 MG X 2, QW
     Route: 042
     Dates: start: 201710
  2. SOLIRIS [Suspect]
     Active Substance: ECULIZUMAB
     Dosage: 900 MG, SINGLE
     Route: 042
  3. SOLIRIS [Suspect]
     Active Substance: ECULIZUMAB
     Dosage: 900 MG, EVERY 15 DAYS
     Route: 042

REACTIONS (4)
  - Incorrect dose administered [Recovered/Resolved]
  - Gene mutation [Unknown]
  - Acute myeloid leukaemia [Unknown]
  - Janus kinase 2 mutation [Unknown]

NARRATIVE: CASE EVENT DATE: 201710
